FAERS Safety Report 19478396 (Version 2)
Quarter: 2021Q3

REPORT INFORMATION
  Report Type: Spontaneous
  Country: FR (occurrence: FR)
  Receive Date: 20210630
  Receipt Date: 20210701
  Transmission Date: 20211014
  Serious: Yes (Disabling, Other)
  Sender: FDA-Public Use
  Company Number: NVSC2021FR146535

PATIENT
  Age: 54 Year
  Sex: Female

DRUGS (3)
  1. AZITHROMYCIN ANHYDROUS. [Suspect]
     Active Substance: AZITHROMYCIN ANHYDROUS
     Indication: EVIDENCE BASED TREATMENT
     Dosage: 600 MG, QD
     Route: 065
     Dates: start: 201901, end: 201903
  2. RIFABUTIN. [Concomitant]
     Active Substance: RIFABUTIN
     Indication: EVIDENCE BASED TREATMENT
     Dosage: 150 MG, QD
     Route: 065
     Dates: start: 201901
  3. ETHAMBUTOL [Concomitant]
     Active Substance: ETHAMBUTOL HYDROCHLORIDE
     Indication: EVIDENCE BASED TREATMENT
     Dosage: 1500 MG, QD
     Route: 065
     Dates: start: 201901, end: 201903

REACTIONS (1)
  - Deafness [Unknown]

NARRATIVE: CASE EVENT DATE: 201903
